FAERS Safety Report 5052909-6 (Version None)
Quarter: 2006Q3

REPORT INFORMATION
  Report Type: 
  Country: None (occurrence: None)
  Receive Date: 20060712
  Receipt Date: 20060712
  Transmission Date: 20061208
  Serious: Yes (Hospitalization)
  Sender: FDA-Public Use
  Company Number: None

PATIENT
  Age: 62 Year
  Sex: Female

DRUGS (4)
  1. CRESTOR [Suspect]
     Dosage: 10 MG DAILY PO [FEW DAYS]
     Route: 048
  2. TRAZODONE HCL [Concomitant]
  3. ATENOLOL [Concomitant]
  4. MTFORMIN [Concomitant]

REACTIONS (3)
  - MUSCLE STRAIN [None]
  - NAUSEA [None]
  - VOMITING [None]
